FAERS Safety Report 5110299-4 (Version None)
Quarter: 2006Q3

REPORT INFORMATION
  Report Type: 
  Country: None (occurrence: None)
  Receive Date: 20060921
  Receipt Date: 20060915
  Transmission Date: 20061208
  Serious: Yes (Other)
  Sender: FDA-Public Use
  Company Number: GB-AVENTIS-200619655GDDC

PATIENT
  Sex: Female

DRUGS (1)
  1. LANTUS [Suspect]

REACTIONS (2)
  - CONVULSION [None]
  - WRONG TECHNIQUE IN DRUG USAGE PROCESS [None]
